FAERS Safety Report 14425216 (Version 3)
Quarter: 2018Q3

REPORT INFORMATION
  Report Type: Spontaneous
  Country: US (occurrence: US)
  Receive Date: 20180123
  Receipt Date: 20180910
  Transmission Date: 20181010
  Serious: Yes (Hospitalization)
  Sender: FDA-Public Use
  Company Number: US-DSJP-DSU-2017-140041

PATIENT

DRUGS (1)
  1. BENICAR [Suspect]
     Active Substance: OLMESARTAN MEDOXOMIL
     Indication: PRODUCT USED FOR UNKNOWN INDICATION
     Dosage: 20 MG, QD
     Route: 048
     Dates: start: 20141101, end: 20151201

REACTIONS (3)
  - Rectal haemorrhage [Unknown]
  - Sprue-like enteropathy [Recovering/Resolving]
  - Polyp [Unknown]

NARRATIVE: CASE EVENT DATE: 20141125
